FAERS Safety Report 9863902 (Version 1)
Quarter: 2014Q1

REPORT INFORMATION
  Report Type: Spontaneous
  Country: IT (occurrence: IT)
  Receive Date: 20140203
  Receipt Date: 20140203
  Transmission Date: 20141002
  Serious: Yes (Hospitalization)
  Sender: FDA-Public Use
  Company Number: IT-GLAXOSMITHKLINE-B0965708A

PATIENT
  Age: 41 Year
  Sex: Female

DRUGS (2)
  1. TYVERB [Suspect]
     Indication: PRODUCT USED FOR UNKNOWN INDICATION
     Dosage: 1250MG PER DAY
     Route: 048
     Dates: end: 20140108
  2. XELODA [Suspect]
     Indication: PRODUCT USED FOR UNKNOWN INDICATION
     Dosage: 2500MG PER DAY
     Route: 048
     Dates: start: 20131112, end: 20131125

REACTIONS (2)
  - Paronychia [Not Recovered/Not Resolved]
  - Skin toxicity [Not Recovered/Not Resolved]
